FAERS Safety Report 14853146 (Version 3)
Quarter: 2019Q3

REPORT INFORMATION
  Report Type: Report from Study
  Country: US (occurrence: US)
  Receive Date: 20180507
  Receipt Date: 20190709
  Transmission Date: 20191004
  Serious: Yes (Death)
  Sender: FDA-Public Use
  Company Number: US-CELGENEUS-USA-20180403785

PATIENT
  Age: 81 Year
  Sex: Male
  Weight: 73.46 kg

DRUGS (12)
  1. VELCADE [Suspect]
     Active Substance: BORTEZOMIB
     Indication: PLASMA CELL MYELOMA
     Dosage: 2.2 MILLIGRAM
     Route: 058
     Dates: start: 20100716, end: 20180202
  2. LIPITOR [Concomitant]
     Active Substance: ATORVASTATIN CALCIUM
     Indication: BLOOD PRESSURE MEASUREMENT
     Dosage: 20 MILLIGRAM
     Route: 048
     Dates: start: 20120112
  3. REVLIMID [Suspect]
     Active Substance: LENALIDOMIDE
     Indication: PLASMA CELL MYELOMA
     Dosage: 25 MILLIGRAM
     Route: 048
     Dates: start: 20160706, end: 20180202
  4. VITAMIN D3 [Concomitant]
     Active Substance: CHOLECALCIFEROL
     Indication: OSTEOPOROSIS
     Dosage: 50000 UNITS
     Route: 048
     Dates: start: 20171010
  5. HYDRALAZINE [Concomitant]
     Active Substance: HYDRALAZINE HYDROCHLORIDE
     Indication: CORONARY ARTERY DISEASE
  6. REVLIMID [Suspect]
     Active Substance: LENALIDOMIDE
     Dosage: 25 MILLIGRAM
     Route: 048
     Dates: start: 20160722
  7. ZEBETA [Concomitant]
     Active Substance: BISOPROLOL FUMARATE
     Indication: CORONARY ARTERY DISEASE
  8. DEXAMETHASONE ORAL [Suspect]
     Active Substance: DEXAMETHASONE
     Indication: PLASMA CELL MYELOMA
     Dosage: 40 MILLIGRAM
     Route: 048
     Dates: start: 20160728, end: 20180202
  9. VITAMIN D3 [Concomitant]
     Active Substance: CHOLECALCIFEROL
     Indication: CORONARY ARTERY DISEASE
  10. ZEBETA [Concomitant]
     Active Substance: BISOPROLOL FUMARATE
     Indication: BLOOD PRESSURE MEASUREMENT
     Dosage: 10 MILLIGRAM
     Route: 048
     Dates: start: 20100623
  11. HYDRALAZINE [Concomitant]
     Active Substance: HYDRALAZINE HYDROCHLORIDE
     Indication: BLOOD PRESSURE MEASUREMENT
     Dosage: 25 MILLIGRAM
     Route: 048
     Dates: start: 20130327
  12. LIPITOR [Concomitant]
     Active Substance: ATORVASTATIN CALCIUM
     Indication: CORONARY ARTERY DISEASE

REACTIONS (2)
  - Renal failure [Fatal]
  - Plasma cell myeloma [Fatal]

NARRATIVE: CASE EVENT DATE: 20180310
